FAERS Safety Report 13323574 (Version 1)
Quarter: 2017Q1

REPORT INFORMATION
  Report Type: Spontaneous
  Country: ZA (occurrence: ZA)
  Receive Date: 20170310
  Receipt Date: 20170310
  Transmission Date: 20170428
  Serious: Yes (Hospitalization)
  Sender: FDA-Public Use
  Company Number: ZA-TEVA-747396ISR

PATIENT
  Age: 73 Year
  Sex: Female
  Weight: 68 kg

DRUGS (11)
  1. KANAMYCIN [Suspect]
     Active Substance: KANAMYCIN\KANAMYCIN A SULFATE
     Indication: PULMONARY TUBERCULOSIS
     Dosage: 1 GRAM DAILY;
     Route: 030
     Dates: start: 20160806, end: 20160816
  2. MOXIFLOXACIN. [Suspect]
     Active Substance: MOXIFLOXACIN
     Indication: PULMONARY TUBERCULOSIS
     Dosage: 400 MILLIGRAM DAILY;
     Dates: start: 20160806, end: 20160824
  3. LEVOFLOXACIN. [Suspect]
     Active Substance: LEVOFLOXACIN
     Dosage: 1000 MILLIGRAM DAILY;
     Route: 065
     Dates: start: 20160825
  4. TRAMADOL. [Suspect]
     Active Substance: TRAMADOL
     Indication: PULMONARY TUBERCULOSIS
     Dosage: 750 MILLIGRAM DAILY;
     Dates: start: 20160806
  5. ETHIONAMIDE [Suspect]
     Active Substance: ETHIONAMIDE
     Indication: PULMONARY TUBERCULOSIS
     Dosage: 750 MILLIGRAM DAILY;
     Dates: start: 20160806, end: 201608
  6. PYRAZINAMIDE. [Suspect]
     Active Substance: PYRAZINAMIDE
     Indication: PULMONARY TUBERCULOSIS
     Dosage: 1700 MILLIGRAM DAILY;
     Route: 065
     Dates: start: 20160806
  7. ETHAMBUTOL [Suspect]
     Active Substance: ETHAMBUTOL HYDROCHLORIDE
     Indication: PULMONARY TUBERCULOSIS
     Dosage: 1200 MILLIGRAM DAILY;
     Route: 065
     Dates: start: 20160806, end: 20170131
  8. LEVOFLOXACIN. [Suspect]
     Active Substance: LEVOFLOXACIN
     Indication: PULMONARY TUBERCULOSIS
     Dosage: 1000 MILLIGRAM DAILY;
     Route: 065
     Dates: start: 20160806
  9. ISONIAZID. [Suspect]
     Active Substance: ISONIAZID
     Indication: PULMONARY TUBERCULOSIS
     Dosage: 900 MILLIGRAM DAILY;
     Dates: start: 20160806, end: 201608
  10. SIMVASTATIN. [Concomitant]
     Active Substance: SIMVASTATIN
     Indication: BLOOD CHOLESTEROL INCREASED
     Route: 065
  11. DELAMANID [Suspect]
     Active Substance: DELAMANID
     Indication: PULMONARY TUBERCULOSIS
     Dosage: 50 MILLIGRAM DAILY;
     Route: 065
     Dates: start: 20160825

REACTIONS (26)
  - Diarrhoea [Recovering/Resolving]
  - Dyspnoea [Unknown]
  - Eating disorder [Unknown]
  - Pancytopenia [Unknown]
  - Blood creatine increased [Recovered/Resolved]
  - Hypomagnesaemia [Recovered/Resolved]
  - Hypoacusis [Unknown]
  - Hypoalbuminaemia [Unknown]
  - Tachycardia [Recovering/Resolving]
  - Hypothyroidism [Unknown]
  - Haemoglobin decreased [Unknown]
  - Hypocalcaemia [Unknown]
  - Chest pain [Unknown]
  - Dehydration [Recovering/Resolving]
  - Hypotension [Recovering/Resolving]
  - Dizziness [Recovering/Resolving]
  - Hypokalaemia [Recovered/Resolved]
  - Asthenia [Recovering/Resolving]
  - Electrocardiogram QT prolonged [Unknown]
  - Haemolysis [Unknown]
  - Anaemia [Recovered/Resolved]
  - Lethargy [Unknown]
  - Condition aggravated [Recovering/Resolving]
  - Vomiting [Recovering/Resolving]
  - Thrombocytopenia [Unknown]
  - Nausea [Unknown]

NARRATIVE: CASE EVENT DATE: 20160812
